FAERS Safety Report 5806383-X (Version None)
Quarter: 2008Q3

REPORT INFORMATION
  Report Type: 
  Country: None (occurrence: None)
  Receive Date: 20080710
  Receipt Date: 20080527
  Transmission Date: 20090109
  Serious: Yes (Hospitalization, Other)
  Sender: FDA-Public Use
  Company Number: AR-AMGEN-US293384

PATIENT
  Sex: Female
  Weight: 42 kg

DRUGS (5)
  1. ENBREL [Suspect]
     Indication: RHEUMATOID ARTHRITIS
     Route: 058
     Dates: start: 20040404, end: 20080407
  2. CORTICOSTEROID NOS [Concomitant]
     Indication: RHEUMATOID ARTHRITIS
     Dosage: 60 MG EVERY OTHER DAY (ONE TABLET OF 40 MG ON DAY AND A 20 MG TABLET THE NEXT)
     Route: 048
  3. CALCIUM [Concomitant]
     Dosage: UNKNOWN
     Route: 065
  4. METHOTREXATE [Concomitant]
     Indication: RHEUMATOID ARTHRITIS
     Dosage: 25 MG INJECTION ONCE A WEEK
     Route: 065
  5. FOLIC ACID [Concomitant]
     Dosage: UNKNOWN
     Route: 065

REACTIONS (9)
  - ARTHRITIS [None]
  - CONDITION AGGRAVATED [None]
  - DECREASED IMMUNE RESPONSIVENESS [None]
  - DEHYDRATION [None]
  - DEPRESSION [None]
  - PNEUMONIA [None]
  - PYREXIA [None]
  - VOMITING [None]
  - WEIGHT DECREASED [None]
